FAERS Safety Report 8969818 (Version 1)
Quarter: 2012Q4

REPORT INFORMATION
  Report Type: 
  Country: US (occurrence: US)
  Receive Date: 20121218
  Receipt Date: 20121218
  Transmission Date: 20130627
  Serious: Yes (Death, Other)
  Sender: FDA-Public Use
  Company Number: US-PFIZER INC-2004068511

PATIENT
  Age: 31 Year
  Sex: Male

DRUGS (4)
  1. IBUPROFEN [Suspect]
     Indication: SUICIDE ATTEMPT
     Dosage: UNSPECIFIED
  2. VERAPAMIL HCL [Suspect]
     Indication: SUICIDE ATTEMPT
     Dosage: UNSPECIFIED
  3. DIPHENHYDRAMINE [Suspect]
     Indication: SUICIDE ATTEMPT
     Dosage: UNSPECIFIED
     Route: 048
  4. TRAZODONE HYDROCHLORIDE [Suspect]
     Indication: SUICIDE ATTEMPT
     Dosage: UNSPECIFIED

REACTIONS (6)
  - Completed suicide [Fatal]
  - Cardiac arrest [Fatal]
  - Coma [Unknown]
  - Pulmonary oedema [Unknown]
  - Hypotension [Unknown]
  - Bradycardia [Unknown]
